FAERS Safety Report 7658931-5 (Version None)
Quarter: 2011Q3

REPORT INFORMATION
  Report Type: 
  Country: None (occurrence: None)
  Receive Date: 20110805
  Receipt Date: 20110726
  Transmission Date: 20111222
  Serious: Yes (Hospitalization)
  Sender: FDA-Public Use
  Company Number: AR-GENENTECH-322365

PATIENT
  Sex: Male

DRUGS (2)
  1. SINTROM [Suspect]
     Indication: ATRIAL FIBRILLATION
     Dosage: UNK UNK, UNKNOWN
     Route: 065
  2. LUCENTIS [Suspect]
     Indication: MACULOPATHY
     Dosage: UNK UNK, UNKNOWN
     Route: 031
     Dates: start: 20101001

REACTIONS (1)
  - CEREBROVASCULAR ACCIDENT [None]
